FAERS Safety Report 19671857 (Version 1)
Quarter: 2021Q3

REPORT INFORMATION
  Report Type: Spontaneous
  Country: ES (occurrence: ES)
  Receive Date: 20210806
  Receipt Date: 20210806
  Transmission Date: 20211014
  Serious: Yes (Other)
  Sender: FDA-Public Use
  Company Number: ES-REGENERON PHARMACEUTICALS, INC.-2021-74720

PATIENT

DRUGS (2)
  1. LIBTAYO [Suspect]
     Active Substance: CEMIPLIMAB-RWLC
     Indication: SQUAMOUS CELL CARCINOMA OF SKIN
     Dosage: UNK
  2. LIBTAYO [Suspect]
     Active Substance: CEMIPLIMAB-RWLC
     Indication: IMMUNOSUPPRESSANT DRUG THERAPY
     Dosage: 350 MG

REACTIONS (6)
  - Transplant rejection [Unknown]
  - Anuria [Unknown]
  - Headache [Unknown]
  - Pyrexia [Unknown]
  - Renal haemorrhage [Unknown]
  - Haematuria [Unknown]
